FAERS Safety Report 11801486 (Version 1)
Quarter: 2015Q4

REPORT INFORMATION
  Report Type: Spontaneous
  Country: KR (occurrence: KR)
  Receive Date: 20151204
  Receipt Date: 20151204
  Transmission Date: 20160305
  Serious: Yes (Hospitalization)
  Sender: FDA-Public Use
  Company Number: KR-AMGEN-KORCT2015129327

PATIENT
  Age: 46 Year
  Sex: Female
  Weight: 48.6 kg

DRUGS (10)
  1. RITUXIMAB [Concomitant]
     Active Substance: RITUXIMAB
     Dosage: 123.75 MG, UNK
     Route: 042
     Dates: start: 20150130, end: 20150130
  2. DOXORUBICIN [Concomitant]
     Active Substance: DOXORUBICIN
     Dosage: 76.5 MG, UNK
     Route: 042
     Dates: start: 20150130, end: 20150130
  3. TRAMADOL. [Concomitant]
     Active Substance: TRAMADOL
     Dosage: 150 MG, UNK
     Route: 042
     Dates: start: 20150206, end: 20150209
  4. MORPHINE [Concomitant]
     Active Substance: MORPHINE
     Dosage: 20 MG, UNK
     Route: 042
     Dates: start: 20150203, end: 20150206
  5. VINCRISTINE [Concomitant]
     Active Substance: VINCRISTINE
     Dosage: 2 MG, UNK
     Route: 042
     Dates: start: 20150130, end: 20150130
  6. PREDNISOLONE. [Concomitant]
     Active Substance: PREDNISOLONE
     Dosage: 100 MG, UNK
     Route: 048
     Dates: start: 20150130, end: 20150130
  7. PETHIDINE [Concomitant]
     Active Substance: MEPERIDINE
     Dosage: 25 MG, UNK
     Route: 042
     Dates: start: 20150203, end: 20150203
  8. BUSCOPAN [Concomitant]
     Active Substance: BUTYLSCOPOLAMINE BROMIDE
     Dosage: 40 MG, UNK
     Route: 048
     Dates: start: 20150207, end: 20150207
  9. G-LASTA [Suspect]
     Active Substance: PEGFILGRASTIM
     Indication: FEBRILE NEUTROPENIA
     Dosage: 6 MG, 1X/3WEEKS
     Route: 058
     Dates: start: 20150201
  10. CYCLOPHOSPHAMIDE. [Concomitant]
     Active Substance: CYCLOPHOSPHAMIDE
     Dosage: 1147.5 MG, UNK
     Route: 042
     Dates: start: 20150130, end: 20150130

REACTIONS (2)
  - Ileus paralytic [Recovered/Resolved]
  - Musculoskeletal pain [Recovered/Resolved]

NARRATIVE: CASE EVENT DATE: 20150201
